FAERS Safety Report 8157388-8 (Version None)
Quarter: 2012Q1

REPORT INFORMATION
  Report Type: 
  Country: None (occurrence: None)
  Receive Date: 20120222
  Receipt Date: 20120216
  Transmission Date: 20120608
  Serious: Yes (Hospitalization)
  Sender: FDA-Public Use
  Company Number: BR-ABBOTT-12P-020-0905751-00

PATIENT
  Sex: Female
  Weight: 61 kg

DRUGS (7)
  1. HUMIRA [Suspect]
     Indication: RHEUMATOID ARTHRITIS
     Dates: start: 20120109
  2. ALGINAC [Concomitant]
     Indication: PAIN
     Route: 048
  3. ARAVA [Suspect]
     Indication: PRODUCT USED FOR UNKNOWN INDICATION
  4. METHOTREXATE [Concomitant]
     Indication: ARTHRITIS
     Dosage: 2 DOSES OF 25 MG ONCE A WEEK, AS NEEDED
     Route: 050
  5. METHOTREXATE [Concomitant]
     Indication: PAIN
     Dosage: 6 TABLETS ONCE
     Route: 048
  6. ACETAMINOPHEN [Concomitant]
     Indication: PAIN
     Route: 048
  7. PREDNISONE [Concomitant]
     Indication: PAIN
     Dosage: 0.5 MORNING, 0.5 EVENING
     Route: 048

REACTIONS (7)
  - WEIGHT DECREASED [None]
  - DECREASED APPETITE [None]
  - ASTHENIA [None]
  - RESPIRATORY DISORDER [None]
  - COUGH [None]
  - X-RAY ABNORMAL [None]
  - PYREXIA [None]
